FAERS Safety Report 9166037 (Version 1)
Quarter: 2013Q1

REPORT INFORMATION
  Report Type: Report from Study
  Country: RO (occurrence: RO)
  Receive Date: 20130315
  Receipt Date: 20130315
  Transmission Date: 20140127
  Serious: Yes (Other)
  Sender: FDA-Public Use
  Company Number: RO-GLAXOSMITHKLINE-B0875221A

PATIENT
  Sex: 0

DRUGS (2)
  1. ACYCLOVIR [Suspect]
     Indication: ANTIVIRAL PROPHYLAXIS
     Route: 065
  2. UNSPECIFIED IMMUNOSUPPRESSANTS [Suspect]
     Indication: SECONDARY IMMUNODEFICIENCY

REACTIONS (5)
  - Drug ineffective [Unknown]
  - Human herpesvirus 6 infection [Recovering/Resolving]
  - Encephalitis viral [Recovering/Resolving]
  - Convulsion [Unknown]
  - Hyponatraemia [None]
